FAERS Safety Report 25229798 (Version 2)
Quarter: 2025Q2

REPORT INFORMATION
  Report Type: Spontaneous
  Country: US (occurrence: US)
  Receive Date: 20250423
  Receipt Date: 20250530
  Transmission Date: 20250716
  Serious: No
  Sender: BIOFRONTERA BIOSCIENCE
  Company Number: US-Biofrontera-2025BIO00050

PATIENT
  Age: 42 Year
  Sex: Female

DRUGS (1)
  1. AMELUZ [Suspect]
     Active Substance: AMINOLEVULINIC ACID HYDROCHLORIDE
     Indication: Product used for unknown indication
     Route: 050
     Dates: start: 20250321, end: 20250321

REACTIONS (5)
  - Sensitive skin [Recovered/Resolved]
  - Application site swelling [Unknown]
  - Application site erythema [Unknown]
  - Discomfort [Unknown]
  - Feeling hot [Unknown]

NARRATIVE: CASE EVENT DATE: 20250321
